FAERS Safety Report 11220811 (Version 1)
Quarter: 2015Q2

REPORT INFORMATION
  Report Type: Spontaneous
  Country: US (occurrence: None)
  Receive Date: 20150625
  Receipt Date: 20150625
  Transmission Date: 20150821
  Serious: Yes (Hospitalization)
  Sender: FDA-Public Use
  Company Number: None

PATIENT
  Age: 70 Year
  Sex: Female
  Weight: 90.9 kg

DRUGS (6)
  1. ZOLOFT [Concomitant]
     Active Substance: SERTRALINE HYDROCHLORIDE
  2. CYCLOBENZAPR [Concomitant]
  3. LASIX [Concomitant]
     Active Substance: FUROSEMIDE
  4. IBRANCE [Suspect]
     Active Substance: PALBOCICLIB
     Indication: BREAST CANCER
     Dosage: 125MG, DAILY FOR 21 DAYS, ORAL
     Route: 048
     Dates: start: 20150601
  5. MORPHINE [Concomitant]
     Active Substance: MORPHINE
  6. GABAPENTIN. [Concomitant]
     Active Substance: GABAPENTIN

REACTIONS (1)
  - Seizure [None]

NARRATIVE: CASE EVENT DATE: 20150621
